FAERS Safety Report 8470404-9 (Version None)
Quarter: 2012Q2

REPORT INFORMATION
  Report Type: 
  Country: None (occurrence: None)
  Receive Date: 20120627
  Receipt Date: 20120619
  Transmission Date: 20120825
  Serious: Yes (Other)
  Sender: FDA-Public Use
  Company Number: KR-UCBSA-024817

PATIENT
  Sex: Female

DRUGS (14)
  1. CIMZIA [Suspect]
     Indication: RHEUMATOID ARTHRITIS
     Route: 058
     Dates: start: 20101027, end: 20111025
  2. PARAMACET [Concomitant]
     Indication: RHEUMATOID ARTHRITIS
     Dosage: 1 TABLET/BID
     Route: 048
     Dates: start: 20101129
  3. METHOTREXATE [Concomitant]
     Indication: RHEUMATOID ARTHRITIS
     Route: 048
     Dates: start: 20080325
  4. TRAMADOL HCL [Concomitant]
     Indication: RHEUMATOID ARTHRITIS
     Route: 048
     Dates: start: 20100429
  5. SODIUM HYALURONATE [Concomitant]
     Indication: DRY EYE
     Dosage: 1 DROP
     Route: 047
     Dates: start: 20101027
  6. CIMZIA [Suspect]
     Dosage: PREVIOUS STUDY: 101-KOA-0801I
     Route: 058
     Dates: start: 20100705, end: 20101013
  7. NABUMETON [Concomitant]
     Indication: RHEUMATOID ARTHRITIS
     Route: 048
     Dates: start: 20080325
  8. TEPRENONE [Concomitant]
     Indication: GASTROINTESTINAL DISORDER
     Route: 048
     Dates: start: 20100609
  9. MOSAPRIDE [Concomitant]
     Indication: GASTROINTESTINAL DISORDER
     Route: 048
     Dates: start: 20080604
  10. FOLIC ACID [Concomitant]
     Indication: DRUG TOXICITY PROPHYLAXIS
     Route: 048
     Dates: start: 20070418
  11. ISONIAZID [Concomitant]
     Indication: ANTIBIOTIC PROPHYLAXIS
     Route: 048
     Dates: start: 20100627
  12. NIFEDIPINE [Concomitant]
     Indication: HYPERTENSION
     Route: 048
     Dates: start: 20101125
  13. METHYLPREDNISOLONE [Concomitant]
     Indication: RHEUMATOID ARTHRITIS
     Route: 048
     Dates: start: 20100116
  14. TEARS NATURAL FREE [Concomitant]
     Indication: DRY EYE
     Dosage: 1 DROP
     Route: 047
     Dates: start: 20101024

REACTIONS (2)
  - ABORTION INDUCED [None]
  - EXPOSURE VIA SEMEN [None]
